FAERS Safety Report 17538378 (Version 2)
Quarter: 2020Q2

REPORT INFORMATION
  Report Type: Report from Study
  Country: DE (occurrence: DE)
  Receive Date: 20200313
  Receipt Date: 20200408
  Transmission Date: 20200713
  Serious: Yes (Hospitalization)
  Sender: FDA-Public Use
  Company Number: DE-JNJFOC-20200308290

PATIENT
  Age: 38 Year
  Sex: Male
  Weight: 59 kg

DRUGS (1)
  1. REMICADE [Suspect]
     Active Substance: INFLIXIMAB
     Indication: CROHN^S DISEASE
     Route: 042
     Dates: start: 201905, end: 20200127

REACTIONS (4)
  - Product use issue [Unknown]
  - Upper gastrointestinal haemorrhage [Recovered/Resolved]
  - Intestinal stenosis [Not Recovered/Not Resolved]
  - Off label use [Unknown]

NARRATIVE: CASE EVENT DATE: 201905
